FAERS Safety Report 19683612 (Version 3)
Quarter: 2021Q3

REPORT INFORMATION
  Report Type: Spontaneous
  Country: US (occurrence: US)
  Receive Date: 20210810
  Receipt Date: 20210829
  Transmission Date: 20211014
  Serious: Yes (Other)
  Sender: FDA-Public Use
  Company Number: US-PRINSTON PHARMACEUTICAL INC.-2021PRN00283

PATIENT
  Age: 25 Year
  Sex: Male
  Weight: 92.52 kg

DRUGS (10)
  1. CLONIDINE HYDROCHLORIDE. [Suspect]
     Active Substance: CLONIDINE HYDROCHLORIDE
     Dosage: 0.5 MG
  2. CBD [Concomitant]
     Active Substance: CANNABIDIOL
  3. CLONAZEPAM. [Suspect]
     Active Substance: CLONAZEPAM
     Indication: ANXIETY
     Dosage: 0.5 MG, 1X/DAY
     Route: 048
     Dates: start: 202105, end: 202107
  4. CLONIDINE HYDROCHLORIDE. [Suspect]
     Active Substance: CLONIDINE HYDROCHLORIDE
     Dosage: 0.5 MG
  5. CLONAZEPAM. [Suspect]
     Active Substance: CLONAZEPAM
     Dosage: 0.25 MG, 1X/DAY
     Dates: start: 20210812
  6. CLONAZEPAM. [Suspect]
     Active Substance: CLONAZEPAM
     Indication: MENTAL DISORDER
     Dosage: 0.25 MG, 1X/DAY
     Route: 048
     Dates: start: 20210808, end: 20210810
  7. CLONAZEPAM. [Suspect]
     Active Substance: CLONAZEPAM
     Dosage: 0.5 MG, 1X/DAY
     Dates: start: 20210811, end: 20210811
  8. CLONAZEPAM. [Suspect]
     Active Substance: CLONAZEPAM
     Indication: AUTISM SPECTRUM DISORDER
     Dosage: 1 MG, 1X/DAY
     Route: 048
     Dates: start: 202107, end: 20210801
  9. THC [Concomitant]
     Active Substance: DRONABINOL
  10. CLONIDINE HYDROCHLORIDE. [Suspect]
     Active Substance: CLONIDINE HYDROCHLORIDE
     Dosage: 1 MG

REACTIONS (10)
  - Decreased appetite [Not Recovered/Not Resolved]
  - Generalised tonic-clonic seizure [Unknown]
  - Weight decreased [Not Recovered/Not Resolved]
  - Fatigue [Recovering/Resolving]
  - Unevaluable event [Recovering/Resolving]
  - Seizure [Not Recovered/Not Resolved]
  - Off label use [Not Recovered/Not Resolved]
  - Retching [Recovering/Resolving]
  - Intentional self-injury [Recovering/Resolving]
  - Aggression [Recovering/Resolving]

NARRATIVE: CASE EVENT DATE: 2021
